FAERS Safety Report 10234074 (Version 2)
Quarter: 2014Q2

REPORT INFORMATION
  Report Type: Spontaneous
  Country: TT (occurrence: TT)
  Receive Date: 20140612
  Receipt Date: 20140617
  Transmission Date: 20141212
  Serious: Yes (Hospitalization, Other)
  Sender: FDA-Public Use
  Company Number: TT-B.I. PHARMACEUTICALS,INC./RIDGEFIELD-2014-BI-26373CN

PATIENT
  Age: 92 Year
  Sex: Male

DRUGS (2)
  1. PRADAXA [Suspect]
     Indication: ATRIAL FIBRILLATION
     Dosage: 220 MG
     Route: 065
     Dates: start: 201405, end: 201406
  2. MEDICATION NOT FURTHER SPECIFIED [Concomitant]
     Route: 065

REACTIONS (2)
  - Strangulated hernia [Recovered/Resolved]
  - Post procedural haemorrhage [Recovered/Resolved]
